FAERS Safety Report 12105905 (Version 2)
Quarter: 2016Q1

REPORT INFORMATION
  Report Type: Spontaneous
  Country: BR (occurrence: BR)
  Receive Date: 20160223
  Receipt Date: 20160303
  Transmission Date: 20160526
  Serious: Yes (Hospitalization)
  Sender: FDA-Public Use
  Company Number: BR-FERRINGPH-2016FE00306

PATIENT

DRUGS (4)
  1. DDAVP [Suspect]
     Active Substance: DESMOPRESSIN ACETATE
     Dosage: 20 ?G, DAILY
     Route: 045
     Dates: start: 2006, end: 2010
  2. ANNITA [Suspect]
     Active Substance: NITAZOXANIDE
     Indication: HELMINTHIC INFECTION
     Dosage: UNK
     Route: 048
     Dates: start: 20160118, end: 20160120
  3. DDAVP [Suspect]
     Active Substance: DESMOPRESSIN ACETATE
     Indication: DIABETES INSIPIDUS
     Dosage: 20 ?G/DAY
     Route: 045
     Dates: start: 2010
  4. DDAVP [Suspect]
     Active Substance: DESMOPRESSIN ACETATE
     Dosage: 25 ?G/DAY
     Dates: start: 2010, end: 2010

REACTIONS (8)
  - Headache [Recovered/Resolved]
  - Viral infection [Recovered/Resolved]
  - Hyponatraemia [Recovered/Resolved]
  - Gastric disorder [Not Recovered/Not Resolved]
  - Micturition urgency [Recovered/Resolved]
  - Micturition urgency [Recovered/Resolved]
  - Chromaturia [Recovered/Resolved]
  - Vertigo [Recovered/Resolved]

NARRATIVE: CASE EVENT DATE: 2010
